FAERS Safety Report 8554462-9 (Version None)
Quarter: 2012Q3

REPORT INFORMATION
  Report Type: 
  Country: None (occurrence: None)
  Receive Date: 20120731
  Receipt Date: 20120718
  Transmission Date: 20120928
  Serious: No
  Sender: FDA-Public Use
  Company Number: US-ASTRAZENECA-2011SE02618

PATIENT
  Age: 73 Year
  Sex: Female

DRUGS (2)
  1. NEXIUM [Suspect]
     Route: 048
  2. NEXIUM [Suspect]
     Route: 048

REACTIONS (7)
  - MALAISE [None]
  - HEARING IMPAIRED [None]
  - CYSTITIS INTERSTITIAL [None]
  - GASTROOESOPHAGEAL REFLUX DISEASE [None]
  - BLADDER DISORDER [None]
  - NASOPHARYNGITIS [None]
  - INTENTIONAL DRUG MISUSE [None]
